FAERS Safety Report 4513312-8 (Version None)
Quarter: 2004Q4

REPORT INFORMATION
  Report Type: 
  Country: None (occurrence: None)
  Receive Date: 20041130
  Receipt Date: 20040727
  Transmission Date: 20050328
  Serious: Yes (Other)
  Sender: FDA-Public Use
  Company Number: US-BRISTOL-MYERS SQUIBB COMPANY-12653697

PATIENT
  Age: 61 Year
  Sex: Male
  Weight: 75 kg

DRUGS (4)
  1. ERBITUX [Suspect]
     Indication: COLON CANCER
     Route: 042
     Dates: start: 20040720, end: 20040720
  2. PREVACID [Concomitant]
  3. ZETIA [Concomitant]
  4. MULTIVITAMINS + MINERALS [Concomitant]

REACTIONS (6)
  - ABDOMINAL PAIN UPPER [None]
  - ANAL DISCOMFORT [None]
  - DERMATITIS ACNEIFORM [None]
  - DYSGEUSIA [None]
  - VOMITING [None]
  - WHITE BLOOD CELL COUNT INCREASED [None]
